FAERS Safety Report 6216129-1 (Version None)
Quarter: 2009Q2

REPORT INFORMATION
  Report Type: 
  Country: None (occurrence: None)
  Receive Date: 20090605
  Receipt Date: 20090527
  Transmission Date: 20091009
  Serious: Yes (Disabling)
  Sender: FDA-Public Use
  Company Number: FI-AVENTIS-200915160GDDC

PATIENT
  Age: 58 Year
  Sex: Female

DRUGS (3)
  1. TELITHROMYCIN [Suspect]
     Indication: PNEUMONIA
     Route: 048
     Dates: start: 20090323, end: 20090401
  2. REMERON [Suspect]
     Route: 048
     Dates: start: 20090101, end: 20090411
  3. REMERON [Suspect]
     Indication: DEPRESSION
     Route: 048
     Dates: start: 20090101, end: 20090411

REACTIONS (3)
  - FATIGUE [None]
  - HEPATIC ENZYME INCREASED [None]
  - PYREXIA [None]
